FAERS Safety Report 11186983 (Version 1)
Quarter: 2015Q2

REPORT INFORMATION
  Report Type: Spontaneous
  Country: GB (occurrence: GB)
  Receive Date: 20150615
  Receipt Date: 20150615
  Transmission Date: 20150821
  Serious: Yes (Disabling)
  Sender: FDA-Public Use
  Company Number: GB-ORION CORPORATION ORION PHARMA-ENT 2015-0912

PATIENT
  Age: 69 Year
  Sex: Male

DRUGS (10)
  1. APOMORPHINE HYDROCHLORIDE [Concomitant]
     Active Substance: APOMORPHINE HYDROCHLORIDE
     Route: 065
  2. ROTIGOTINE [Concomitant]
     Active Substance: ROTIGOTINE
     Route: 062
  3. GAVISCON [Concomitant]
     Active Substance: ALUMINUM HYDROXIDE\MAGNESIUM CARBONATE
     Route: 065
  4. HYOSCINE [Concomitant]
     Active Substance: SCOPOLAMINE
     Route: 062
  5. LAXIDO [Concomitant]
     Active Substance: POLYETHYLENE GLYCOL 3350\POTASSIUM CHLORIDE\SODIUM BICARBONATE\SODIUM CHLORIDE
     Route: 048
  6. ATENOLOL. [Concomitant]
     Active Substance: ATENOLOL
     Route: 065
  7. ENTACAPONE ORION [Suspect]
     Active Substance: ENTACAPONE
     Indication: PARKINSON^S DISEASE
     Route: 048
  8. MADOPAR [Concomitant]
     Active Substance: BENSERAZIDE HYDROCHLORIDE\LEVODOPA
     Route: 065
  9. MADOPAR [Concomitant]
     Active Substance: BENSERAZIDE HYDROCHLORIDE\LEVODOPA
     Route: 065
  10. TAMSULOSIN [Concomitant]
     Active Substance: TAMSULOSIN
     Route: 065

REACTIONS (6)
  - Hallucination [Not Recovered/Not Resolved]
  - Product quality issue [Unknown]
  - Somnambulism [Not Recovered/Not Resolved]
  - Abnormal dreams [Not Recovered/Not Resolved]
  - Emotional distress [Unknown]
  - Product substitution issue [Unknown]

NARRATIVE: CASE EVENT DATE: 20150420
